FAERS Safety Report 21774119 (Version 1)
Quarter: 2022Q4

REPORT INFORMATION
  Report Type: Spontaneous
  Country: IT (occurrence: IT)
  Receive Date: 20221223
  Receipt Date: 20221223
  Transmission Date: 20230113
  Serious: Yes (Death, Other)
  Sender: FDA-Public Use
  Company Number: IT-GILEAD-2022-0610620

PATIENT
  Sex: Male

DRUGS (6)
  1. YESCARTA [Suspect]
     Active Substance: AXICABTAGENE CILOLEUCEL
     Indication: Product used for unknown indication
     Dosage: UNK
     Route: 065
     Dates: start: 20220510, end: 20220510
  2. RITUXIMAB [Concomitant]
     Active Substance: RITUXIMAB
  3. GLOFITAMAB [Concomitant]
     Active Substance: GLOFITAMAB
  4. IFOSFAMIDE [Concomitant]
     Active Substance: IFOSFAMIDE
  5. EPIRUBICIN [Concomitant]
     Active Substance: EPIRUBICIN
  6. ETOPOSIDE [Concomitant]
     Active Substance: ETOPOSIDE

REACTIONS (3)
  - Disease progression [Fatal]
  - Hypogammaglobulinaemia [Unknown]
  - Hypogammaglobulinaemia [Unknown]
